FAERS Safety Report 4699104-8 (Version None)
Quarter: 2005Q2

REPORT INFORMATION
  Report Type: 
  Country: None (occurrence: None)
  Receive Date: 20050622
  Receipt Date: 20050622
  Transmission Date: 20051028
  Serious: Yes (Other)
  Sender: FDA-Public Use
  Company Number: None

PATIENT
  Age: 64 Year
  Sex: Male
  Weight: 64 kg

DRUGS (1)
  1. VIAGRA [Suspect]
     Dosage: 4 TO 5 TIME IN MONTH

REACTIONS (1)
  - VISUAL ACUITY REDUCED [None]
